FAERS Safety Report 8127558-3 (Version None)
Quarter: 2012Q1

REPORT INFORMATION
  Report Type: 
  Country: None (occurrence: None)
  Receive Date: 20120210
  Receipt Date: 20120131
  Transmission Date: 20120608
  Serious: Yes (Death)
  Sender: FDA-Public Use
  Company Number: FR-MPIJNJ-2012-00569

PATIENT

DRUGS (4)
  1. CORDARONE [Concomitant]
     Indication: ARRHYTHMIA
     Dosage: 200 MG, UNK
     Dates: start: 20111108, end: 20120120
  2. RABEPRAZOLE SODIUM [Concomitant]
     Indication: PROPHYLAXIS
     Dosage: 20 MG, UNK
     Dates: start: 20111201, end: 20120120
  3. DURAGESIC-100 [Concomitant]
     Indication: PAIN
     Dosage: 50 UG, UNK
     Route: 062
     Dates: start: 20120118, end: 20120119
  4. VELCADE [Suspect]
     Indication: MULTIPLE MYELOMA
     Dosage: 1.9 MG, UNK
     Route: 042
     Dates: start: 20111230

REACTIONS (1)
  - CLOSTRIDIUM DIFFICILE COLITIS [None]
